FAERS Safety Report 21115628 (Version 3)
Quarter: 2022Q4

REPORT INFORMATION
  Report Type: Spontaneous
  Country: US (occurrence: US)
  Receive Date: 20220721
  Receipt Date: 20221013
  Transmission Date: 20230112
  Serious: Yes (Hospitalization, Other)
  Sender: FDA-Public Use
  Company Number: US-SA-SAC20220715002196

PATIENT
  Age: 74 Year
  Sex: Male

DRUGS (2)
  1. DUPIXENT [Suspect]
     Active Substance: DUPILUMAB
     Indication: Dermatitis atopic
     Dosage: 300 MG, FREQUENCY: OTHER
     Route: 058
     Dates: start: 202204
  2. SIMILASAN FOR INFLAMMATION OF THE MOUTH AND THROAT [Concomitant]
     Active Substance: HOMEOPATHICS

REACTIONS (8)
  - Angina pectoris [Unknown]
  - Seasonal allergy [Unknown]
  - Dry mouth [Unknown]
  - Ocular hyperaemia [Unknown]
  - Dry eye [Unknown]
  - Eye irritation [Unknown]
  - Product dose omission in error [Unknown]
  - Eye pruritus [Unknown]

NARRATIVE: CASE EVENT DATE: 20220101
